FAERS Safety Report 22121482 (Version 1)
Quarter: 2023Q1

REPORT INFORMATION
  Report Type: Spontaneous
  Country: GB (occurrence: GB)
  Receive Date: 20230321
  Receipt Date: 20230321
  Transmission Date: 20230418
  Serious: Yes (Hospitalization, Other)
  Sender: FDA-Public Use
  Company Number: None

PATIENT
  Age: 69 Year
  Sex: Male

DRUGS (10)
  1. DALTEPARIN SODIUM [Suspect]
     Active Substance: DALTEPARIN SODIUM
  2. BENDROFLUMETHIAZIDE [Suspect]
     Active Substance: BENDROFLUMETHIAZIDE
     Dosage: 2.5 MG, 1X/DAY
  3. SITAGLIPTIN [Suspect]
     Active Substance: SITAGLIPTIN
     Dosage: 100 MG, 1X/DAY
  4. ATORVASTATIN [Concomitant]
     Active Substance: ATORVASTATIN
     Dosage: 40 MG, 1X/DAY (AT NIGHT)
  5. NOVORAPID [Concomitant]
     Active Substance: INSULIN ASPART
     Dosage: FLEXPEN 100UNITS/ML 3ML PRE-FILLED PEN
     Dates: start: 20230309
  6. PERINDOPRIL ERBUMINE [Concomitant]
     Active Substance: PERINDOPRIL ERBUMINE
     Dosage: 8 MG, 1X/DAY
  7. TRESIBA [Concomitant]
     Active Substance: INSULIN DEGLUDEC
     Dosage: UNK UNK, 1X/DAY 66 UNITS OM  FLEXTOUCH 200UNITS/ML 3ML PRE-FILLED PEN
  8. DEXTROSE [Concomitant]
     Active Substance: DEXTROSE
     Dosage: TAKE 1 DOSE WHEN BM IS BELOWS BELOW 4.0MMO/L. RE-CHECK BM AFTER 15 MINS.
  9. SENNA LEAF [Concomitant]
     Active Substance: SENNA LEAF
     Dosage: UNK, AS NEEDED (PRN (POD X2))
  10. FLEXITOL [Concomitant]
     Dosage: AS DIRECTED - OM PRN

REACTIONS (1)
  - Pancytopenia [Recovered/Resolved]
